FAERS Safety Report 8558800-2 (Version None)
Quarter: 2012Q3

REPORT INFORMATION
  Report Type: 
  Country: None (occurrence: None)
  Receive Date: 20120801
  Receipt Date: 20120719
  Transmission Date: 20120928
  Serious: Yes (Other)
  Sender: FDA-Public Use
  Company Number: GB-009507513-1205USA00026

PATIENT

DRUGS (21)
  1. APREPITANT [Suspect]
     Indication: PROPHYLAXIS OF NAUSEA AND VOMITING
     Dosage: 125 MG, ONCE
     Route: 048
     Dates: start: 20120417, end: 20120417
  2. DOXORUBICIN HYDROCHLORIDE [Suspect]
     Indication: BONE SARCOMA
     Dosage: 59 MG, QD
     Route: 042
     Dates: start: 20120417, end: 20120419
  3. CISPLATIN [Suspect]
     Indication: BONE SARCOMA
     Dosage: 63 MG, QD
     Route: 042
     Dates: start: 20120417, end: 20120420
  4. DEXAMETHASONE [Suspect]
     Dosage: 12 ML, ONCE
     Route: 041
     Dates: start: 20120417, end: 20120417
  5. LEVOMEPROMAZINE [Concomitant]
     Indication: VOMITING
     Dosage: 1.3 MG, BID
     Route: 042
     Dates: start: 20120419, end: 20120419
  6. ACETAMINOPHEN [Concomitant]
     Dosage: 1 G, QID
     Route: 048
     Dates: start: 20120417, end: 20120417
  7. DEXAMETHASONE [Suspect]
     Dosage: 15 ML, TID
     Route: 042
     Dates: start: 20120418, end: 20120420
  8. APREPITANT [Suspect]
     Dosage: 80 MG, ONCE
     Route: 048
     Dates: start: 20120418, end: 20120418
  9. APREPITANT [Suspect]
     Dosage: 80 MG, ONCE
     Route: 048
     Dates: start: 20120419, end: 20120419
  10. ONDANSETRON HCL [Suspect]
     Dosage: 8 MG, BID
     Route: 048
     Dates: start: 20120417, end: 20120420
  11. ONDANSETRON [Concomitant]
     Indication: NAUSEA
     Dosage: 8 MG, BID
     Route: 042
     Dates: start: 20120414, end: 20120414
  12. SODIUM CHLORIDE [Concomitant]
     Indication: FLUID REPLACEMENT
     Dosage: 1000 ML, ONCE
     Route: 042
     Dates: start: 20120417, end: 20120417
  13. DIHYDROCODEINE BITARTRATE INJ [Concomitant]
     Dosage: 90 MG, PRN
     Route: 048
     Dates: start: 20120415, end: 20120415
  14. METOCLOPRAMIDE [Concomitant]
     Indication: NAUSEA
     Dosage: 10 MG, QID
     Route: 042
     Dates: start: 20120419, end: 20120419
  15. ACETAMINOPHEN [Concomitant]
     Indication: PAIN
     Dosage: 1 G, QD
     Route: 048
     Dates: start: 20120413, end: 20120414
  16. ACETAMINOPHEN [Concomitant]
     Dosage: 1 G, TID
     Route: 048
     Dates: start: 20120416, end: 20120416
  17. ACETAMINOPHEN [Concomitant]
     Dosage: 1 G, ONCE
     Route: 048
     Dates: start: 20120418, end: 20120418
  18. DIHYDROCODEINE BITARTRATE INJ [Concomitant]
     Indication: PAIN
     Dosage: 30 MG, BID
     Route: 048
     Dates: start: 20120414, end: 20120414
  19. ACETAMINOPHEN [Concomitant]
     Dosage: 1 G, QID
     Route: 048
     Dates: start: 20120415, end: 20120415
  20. AMETOP [Concomitant]
     Indication: ANALGESIC THERAPY
     Dosage: 40 MG, ONCE
     Route: 061
     Dates: start: 20120413, end: 20120413
  21. METOCLOPRAMIDE [Concomitant]
     Indication: VOMITING
     Dosage: 2.5 MG, QID
     Route: 042
     Dates: start: 20120419, end: 20120419

REACTIONS (1)
  - ELECTROCARDIOGRAM T WAVE INVERSION [None]
